FAERS Safety Report 8296130-7 (Version None)
Quarter: 2012Q2

REPORT INFORMATION
  Report Type: 
  Country: None (occurrence: None)
  Receive Date: 20120418
  Receipt Date: 20120412
  Transmission Date: 20120825
  Serious: Yes (Death, Hospitalization)
  Sender: FDA-Public Use
  Company Number: US-GLAXOSMITHKLINE-A0973990A

PATIENT
  Age: 94 Year
  Sex: Female

DRUGS (2)
  1. BORTEZOMIB [Suspect]
     Indication: MULTIPLE MYELOMA
     Dosage: 1MG SEE DOSAGE TEXT
     Route: 058
     Dates: start: 20120105, end: 20120216
  2. MELPHALAN HYDROCHLORIDE [Suspect]
     Indication: MULTIPLE MYELOMA
     Dosage: 2MG SEE DOSAGE TEXT
     Route: 048
     Dates: start: 20110830

REACTIONS (2)
  - DEATH [None]
  - PNEUMONIA [None]
